FAERS Safety Report 10152895 (Version 2)
Quarter: 2014Q2

REPORT INFORMATION
  Report Type: Spontaneous
  Country: US (occurrence: US)
  Receive Date: 20140505
  Receipt Date: 20140630
  Transmission Date: 20141212
  Serious: Yes (Death)
  Sender: FDA-Public Use
  Company Number: US-GLAXOSMITHKLINE-A1070992A

PATIENT
  Age: 79 Year
  Sex: Male

DRUGS (2)
  1. REQUIP XL [Suspect]
     Indication: MOVEMENT DISORDER
     Dosage: 6MG PER DAY
     Route: 065
     Dates: start: 2011, end: 20140411
  2. UNKNOWN MEDICATION [Concomitant]

REACTIONS (6)
  - Parkinson^s disease [Not Recovered/Not Resolved]
  - Hospice care [Not Recovered/Not Resolved]
  - Fall [Not Recovered/Not Resolved]
  - Injury [Not Recovered/Not Resolved]
  - Dementia [Not Recovered/Not Resolved]
  - Death [Fatal]
